FAERS Safety Report 6666911-1 (Version None)
Quarter: 2010Q2

REPORT INFORMATION
  Report Type: 
  Country: None (occurrence: None)
  Receive Date: 20100402
  Receipt Date: 20100402
  Transmission Date: 20101027
  Serious: Yes (Hospitalization)
  Sender: FDA-Public Use
  Company Number: None

PATIENT
  Sex: Female
  Weight: 66.8 kg

DRUGS (2)
  1. CARBOPLATIN [Suspect]
     Dosage: 610 MG
     Dates: end: 20081211
  2. PACLITAXEL [Suspect]
     Dosage: 380 MG
     Dates: end: 20081211

REACTIONS (5)
  - ENTEROCUTANEOUS FISTULA [None]
  - INCISION SITE ERYTHEMA [None]
  - NAUSEA [None]
  - PYREXIA [None]
  - VOMITING [None]
